FAERS Safety Report 14532185 (Version 1)
Quarter: 2018Q1

REPORT INFORMATION
  Report Type: Spontaneous
  Country: TW (occurrence: TW)
  Receive Date: 20180214
  Receipt Date: 20180214
  Transmission Date: 20180509
  Serious: Yes (Death)
  Sender: FDA-Public Use
  Company Number: TW-BIOCRYST PHARMACEUTICALS, INC.-2018BCR00023

PATIENT
  Age: 75 Year
  Sex: Female

DRUGS (2)
  1. RAPIACTA [Suspect]
     Active Substance: PERAMIVIR
     Indication: INFLUENZA
     Dosage: 600 MG, UNK
     Route: 042
     Dates: start: 20170531, end: 20170604
  2. LEVOFLOXACIN. [Concomitant]
     Active Substance: LEVOFLOXACIN
     Indication: PNEUMONIA

REACTIONS (1)
  - Condition aggravated [Fatal]
